FAERS Safety Report 4386931-X (Version None)
Quarter: 2004Q2

REPORT INFORMATION
  Report Type: 
  Country: None (occurrence: None)
  Receive Date: 20040625
  Receipt Date: 20040617
  Transmission Date: 20050107
  Serious: Yes (Other)
  Sender: FDA-Public Use
  Company Number: 2004219525JP

PATIENT

DRUGS (1)
  1. ALDACTONE [Suspect]
     Dosage: ORAL
     Route: 048

REACTIONS (1)
  - MYOCARDITIS [None]
